FAERS Safety Report 8861865 (Version 1)
Quarter: 2012Q4

REPORT INFORMATION
  Report Type: 
  Country: US (occurrence: US)
  Receive Date: 20121025
  Receipt Date: 20121025
  Transmission Date: 20130627
  Serious: No
  Sender: FDA-Public Use
  Company Number: US-AMGEN-USASP2012022938

PATIENT
  Sex: Male

DRUGS (4)
  1. ENBREL [Suspect]
     Indication: PSORIATIC ARTHROPATHY
     Dosage: 25 mg, 2 times/wk
     Dates: start: 2002, end: 2006
  2. ENBREL [Suspect]
     Indication: PSORIASIS
  3. HUMIRA [Concomitant]
  4. STRATTERA [Concomitant]

REACTIONS (2)
  - Psoriasis [Not Recovered/Not Resolved]
  - Sinusitis [Recovered/Resolved]
